FAERS Safety Report 7333584-4 (Version None)
Quarter: 2011Q1

REPORT INFORMATION
  Report Type: 
  Country: None (occurrence: None)
  Receive Date: 20110304
  Receipt Date: 20110223
  Transmission Date: 20110831
  Serious: Yes (Death, Hospitalization, Other)
  Sender: FDA-Public Use
  Company Number: IT-ALLERGAN-1011294US

PATIENT
  Age: 75 Year
  Sex: Female

DRUGS (1)
  1. BOTOXA? [Suspect]
     Indication: OESOPHAGEAL ACHALASIA
     Dosage: 100 UNITS, SINGLE

REACTIONS (20)
  - RESPIRATORY FAILURE [None]
  - ATONIC URINARY BLADDER [None]
  - THERAPEUTIC RESPONSE DECREASED [None]
  - HYPOTENSION [None]
  - NEUROMYOPATHY [None]
  - DRUG INEFFECTIVE [None]
  - MUSCULAR WEAKNESS [None]
  - DYSARTHRIA [None]
  - CARDIAC FAILURE CONGESTIVE [None]
  - REGURGITATION [None]
  - ILEUS PARALYTIC [None]
  - DYSKINESIA [None]
  - NASAL DISORDER [None]
  - MUSCLE CONTRACTIONS INVOLUNTARY [None]
  - PNEUMONIA [None]
  - DYSPHAGIA [None]
  - RESPIRATORY DISTRESS [None]
  - BOTULISM [None]
  - BRADYCARDIA [None]
  - ANAEMIA [None]
